FAERS Safety Report 4940000-6 (Version None)
Quarter: 2006Q1

REPORT INFORMATION
  Report Type: 
  Country: None (occurrence: None)
  Receive Date: 20060307
  Receipt Date: 20060303
  Transmission Date: 20060701
  Serious: Yes (Death)
  Sender: FDA-Public Use
  Company Number: SUSI-2006-00261

PATIENT
  Age: 18 Year
  Sex: Male

DRUGS (1)
  1. ADDERALL 10 [Suspect]
     Indication: ATTENTION DEFICIT/HYPERACTIVITY DISORDER
     Dates: start: 19940101

REACTIONS (1)
  - MYOCARDIAL INFARCTION [None]
